FAERS Safety Report 20349536 (Version 1)
Quarter: 2022Q1

REPORT INFORMATION
  Report Type: Spontaneous
  Country: US (occurrence: None)
  Receive Date: 20220118
  Receipt Date: 20220118
  Transmission Date: 20220423
  Serious: Yes (Death)
  Sender: FDA-Public Use
  Company Number: None

PATIENT
  Age: 56 Year
  Sex: Male

DRUGS (1)
  1. RILUZOLE [Suspect]
     Active Substance: RILUZOLE
     Indication: Amyotrophic lateral sclerosis
     Dosage: FREQUENCY : AS DIRECTED; TAKE 1 TABLET BY MOUTH EVERY 12 HOURS?
     Route: 048
     Dates: start: 20181221, end: 20211026

REACTIONS (1)
  - Death [None]

NARRATIVE: CASE EVENT DATE: 20211026
